FAERS Safety Report 16851267 (Version 1)
Quarter: 2019Q3

REPORT INFORMATION
  Report Type: Spontaneous
  Country: AU (occurrence: AU)
  Receive Date: 20190925
  Receipt Date: 20190925
  Transmission Date: 20191005
  Serious: Yes (Other)
  Sender: FDA-Public Use
  Company Number: AU-IPSEN BIOPHARMACEUTICALS, INC.-2019-17250

PATIENT
  Sex: Female

DRUGS (1)
  1. DYSPORT [Suspect]
     Active Substance: ABOBOTULINUMTOXINA
     Indication: PRODUCT USED FOR UNKNOWN INDICATION
     Dosage: NOT REPORTED
     Route: 065

REACTIONS (12)
  - Dizziness [Unknown]
  - Muscle spasms [Unknown]
  - Facial paralysis [Unknown]
  - Nausea [Unknown]
  - Vision blurred [Unknown]
  - Hyperhidrosis [Unknown]
  - Sensation of foreign body [Unknown]
  - Musculoskeletal stiffness [Unknown]
  - Muscular weakness [Unknown]
  - Anosmia [Unknown]
  - Change of bowel habit [Unknown]
  - Weight decreased [Unknown]
